FAERS Safety Report 8864257 (Version 1)
Quarter: 2012Q4

REPORT INFORMATION
  Report Type: 
  Country: US (occurrence: US)
  Receive Date: 20121024
  Receipt Date: 20121024
  Transmission Date: 20130627
  Serious: No
  Sender: FDA-Public Use
  Company Number: US-AMGEN-USASP2011066599

PATIENT
  Age: 55 Year
  Sex: Female
  Weight: 52.15 kg

DRUGS (5)
  1. ENBREL [Suspect]
     Indication: RHEUMATOID ARTHRITIS
     Dosage: 25 mg, 2 times/wk
     Route: 058
     Dates: start: 20091219
  2. METHOTREXATE [Concomitant]
     Dosage: 2.5 mg, UNK
  3. VIAGRA [Concomitant]
     Dosage: 100 mg, UNK
  4. GABAPENTIN [Concomitant]
     Dosage: 100 mg, UNK
  5. LISINOPRIL [Concomitant]
     Dosage: 5 mg, UNK

REACTIONS (1)
  - Therapeutic response decreased [Not Recovered/Not Resolved]
